FAERS Safety Report 10648270 (Version 1)
Quarter: 2014Q4

REPORT INFORMATION
  Report Type: Spontaneous
  Country: CO (occurrence: CO)
  Receive Date: 20141212
  Receipt Date: 20141212
  Transmission Date: 20150529
  Serious: Yes (Hospitalization, Other)
  Sender: FDA-Public Use
  Company Number: CO-AMGEN-COLSP2014096021

PATIENT
  Age: 55 Year
  Sex: Female

DRUGS (1)
  1. ENBREL [Suspect]
     Active Substance: ETANERCEPT
     Indication: RHEUMATOID ARTHRITIS
     Dosage: 50 MG, WEEKLY
     Route: 058
     Dates: start: 2012

REACTIONS (6)
  - Abdominal pain [Unknown]
  - Enteritis [Unknown]
  - Cholelithiasis [Unknown]
  - Pancreatitis [Unknown]
  - Hepatitis [Unknown]
  - Peritonitis [Unknown]

NARRATIVE: CASE EVENT DATE: 20141011
